FAERS Safety Report 10374337 (Version 2)
Quarter: 2014Q3

REPORT INFORMATION
  Report Type: Spontaneous
  Country: US (occurrence: US)
  Receive Date: 20140811
  Receipt Date: 20140926
  Transmission Date: 20150326
  Serious: No
  Sender: FDA-Public Use
  Company Number: US-BIOGENIDEC-2014BI076566

PATIENT
  Age: 45 Year
  Sex: Female

DRUGS (12)
  1. LYRICA [Concomitant]
     Active Substance: PREGABALIN
  2. SUMATRIPTAN SUCCINATE. [Concomitant]
     Active Substance: SUMATRIPTAN SUCCINATE
  3. PERCOCET [Concomitant]
     Active Substance: ACETAMINOPHEN\OXYCODONE HYDROCHLORIDE
  4. TOPAMAX [Concomitant]
     Active Substance: TOPIRAMATE
  5. VESICARE [Concomitant]
     Active Substance: SOLIFENACIN SUCCINATE
  6. VITAMIN D [Concomitant]
     Active Substance: CHOLECALCIFEROL
  7. OMEPRAZOLE. [Concomitant]
     Active Substance: OMEPRAZOLE
  8. TECFIDERA [Suspect]
     Active Substance: DIMETHYL FUMARATE
     Indication: MULTIPLE SCLEROSIS
     Route: 048
     Dates: start: 20140701
  9. FLEXERIL [Concomitant]
     Active Substance: CYCLOBENZAPRINE HYDROCHLORIDE
  10. MACRODANTIN [Concomitant]
     Active Substance: NITROFURANTOIN
  11. CREON [Concomitant]
     Active Substance: PANCRELIPASE AMYLASE\PANCRELIPASE LIPASE\PANCRELIPASE PROTEASE
  12. METFORMIN HCL ER [Concomitant]

REACTIONS (5)
  - Arthralgia [Not Recovered/Not Resolved]
  - Migraine [Not Recovered/Not Resolved]
  - Flushing [Unknown]
  - Headache [Unknown]
  - Pruritus [Unknown]
